FAERS Safety Report 9052239 (Version 2)
Quarter: 2013Q1

REPORT INFORMATION
  Report Type: Spontaneous
  Country: AR (occurrence: AR)
  Receive Date: 20130206
  Receipt Date: 20130313
  Transmission Date: 20140127
  Serious: Yes (Hospitalization, Other)
  Sender: FDA-Public Use
  Company Number: PHHY2013AR010744

PATIENT
  Sex: Male

DRUGS (3)
  1. DIOVAN [Suspect]
     Indication: CARDIOMEGALY
     Dosage: 1 DF, (80 MG), DAILY
     Route: 048
  2. DIOVAN [Suspect]
     Dosage: 1 DF,(160 MG), DAILY
     Route: 048
  3. SINTROM [Suspect]

REACTIONS (7)
  - Urinary tract infection [Recovering/Resolving]
  - Nosocomial infection [Unknown]
  - Hernia [Recovering/Resolving]
  - Fall [Recovering/Resolving]
  - Panic disorder [Recovering/Resolving]
  - Hypokinesia [Recovering/Resolving]
  - Blister [Unknown]
